FAERS Safety Report 9164930 (Version 3)
Quarter: 2014Q1

REPORT INFORMATION
  Report Type: Report from Study
  Country: KR (occurrence: KR)
  Receive Date: 20130315
  Receipt Date: 20140131
  Transmission Date: 20141002
  Serious: Yes (Death, Hospitalization)
  Sender: FDA-Public Use
  Company Number: KR-SANOFI-AVENTIS-2013SA025597

PATIENT
  Age: 60 Year
  Sex: Male
  Weight: 47.8 kg

DRUGS (5)
  1. DOCETAXEL [Suspect]
     Indication: NON-SMALL CELL LUNG CANCER STAGE IV
     Dosage: DAY 1 OF 21 DAY CYCLE)
     Route: 042
     Dates: start: 20121105
  2. BLINDED THERAPY [Suspect]
     Indication: NON-SMALL CELL LUNG CANCER STAGE IV
     Route: 042
     Dates: start: 20121105
  3. ACETAMINOPHEN [Concomitant]
     Indication: PAIN
     Dates: start: 20121105, end: 20121126
  4. GABAPENTIN [Concomitant]
     Indication: NEURALGIA
     Dates: start: 20121114, end: 20121126
  5. DEXAMETHASONE [Concomitant]
     Dates: start: 20121104, end: 20121106

REACTIONS (1)
  - Pneumonia [Fatal]
